FAERS Safety Report 9139584 (Version 1)
Quarter: 2013Q1

REPORT INFORMATION
  Report Type: Report from Study
  Country: CA (occurrence: CA)
  Receive Date: 20130305
  Receipt Date: 20130305
  Transmission Date: 20140127
  Serious: Yes (Other)
  Sender: FDA-Public Use
  Company Number: CA-JNJFOC-20130216480

PATIENT
  Age: 49 Year
  Sex: Female
  Weight: 55.79 kg

DRUGS (1)
  1. REMICADE [Suspect]
     Indication: CROHN^S DISEASE
     Dosage: FREQUENCY: ONCE IN EVERY 0, 2 AND  6 WEEKS.
     Route: 042

REACTIONS (1)
  - Mastitis [Unknown]
